FAERS Safety Report 21229094 (Version 1)
Quarter: 2022Q3

REPORT INFORMATION
  Report Type: Report from Study
  Country: KR (occurrence: KR)
  Receive Date: 20220818
  Receipt Date: 20220818
  Transmission Date: 20221027
  Serious: Yes (Other)
  Sender: FDA-Public Use
  Company Number: KR-ABBVIE-22K-090-4501578-00

PATIENT
  Age: 60 Year
  Sex: Female
  Weight: 56 kg

DRUGS (2)
  1. SKYRIZI [Suspect]
     Active Substance: RISANKIZUMAB-RZAA
     Indication: Psoriasis
     Dosage: ONCE
     Route: 058
     Dates: start: 20210916, end: 20210916
  2. BETAMETHASONE DIPROPIONATE\CALCIPOTRIENE HYDRATE [Concomitant]
     Active Substance: BETAMETHASONE DIPROPIONATE\CALCIPOTRIENE HYDRATE
     Indication: Psoriasis
     Dosage: PRN
     Route: 061
     Dates: start: 20220103

REACTIONS (2)
  - Surgery [Recovered/Resolved]
  - Seborrhoeic keratosis [Recovered/Resolved]

NARRATIVE: CASE EVENT DATE: 20211223
